FAERS Safety Report 13058351 (Version 3)
Quarter: 2017Q4

REPORT INFORMATION
  Report Type: Spontaneous
  Country: US (occurrence: US)
  Receive Date: 20161223
  Receipt Date: 20171016
  Transmission Date: 20180320
  Serious: No
  Sender: FDA-Public Use
  Company Number: US-PFIZER INC-2016582786

PATIENT
  Age: 43 Year
  Sex: Female

DRUGS (2)
  1. KEFLEX [Suspect]
     Active Substance: CEPHALEXIN
     Indication: BRONCHITIS
     Dosage: UNK
     Route: 048
     Dates: start: 2016
  2. DOXYCYCLINE CALCIUM [Suspect]
     Active Substance: DOXYCYCLINE CALCIUM
     Indication: BRONCHITIS
     Dosage: UNK
     Route: 048
     Dates: start: 2016

REACTIONS (3)
  - Cold sweat [Recovered/Resolved]
  - Drug hypersensitivity [Unknown]
  - Hyperhidrosis [Recovered/Resolved]

NARRATIVE: CASE EVENT DATE: 2016
